FAERS Safety Report 7389335-0 (Version None)
Quarter: 2011Q2

REPORT INFORMATION
  Report Type: 
  Country: None (occurrence: None)
  Receive Date: 20110401
  Receipt Date: 20110325
  Transmission Date: 20111010
  Serious: Yes (Hospitalization)
  Sender: FDA-Public Use
  Company Number: A0920098A

PATIENT
  Age: 41 Year
  Sex: Male
  Weight: 76.5 kg

DRUGS (4)
  1. GLIMEPIRIDE [Suspect]
     Dosage: 4MG PER DAY
     Route: 048
  2. BLINDED TRIAL MEDICATION [Suspect]
  3. BC POWDER [Suspect]
     Indication: HEADACHE
     Route: 048
     Dates: start: 20110101, end: 20110301
  4. METFORMIN HCL [Suspect]
     Route: 048

REACTIONS (1)
  - MALAISE [None]
